FAERS Safety Report 12613898 (Version 1)
Quarter: 2016Q3

REPORT INFORMATION
  Report Type: Spontaneous
  Country: US (occurrence: None)
  Receive Date: 20160801
  Receipt Date: 20160801
  Transmission Date: 20161109
  Serious: Yes (Other)
  Sender: FDA-Public Use
  Company Number: None

PATIENT
  Age: 55 Year
  Sex: Female
  Weight: 68.04 kg

DRUGS (7)
  1. FLUXOTINE [Concomitant]
  2. MULTIVITAMIN [Concomitant]
     Active Substance: VITAMINS
  3. BACOPA MONNIERI WHOLE\GERANIUM\RAUWOLFIA [Concomitant]
     Active Substance: BACOPA MONNIERI WHOLE\GERANIUM\RAUWOLFIA
  4. ADDERALL [Concomitant]
     Active Substance: AMPHETAMINE ASPARTATE\AMPHETAMINE SULFATE\DEXTROAMPHETAMINE SACCHARATE\DEXTROAMPHETAMINE SULFATE
  5. RHODIOLA [Concomitant]
     Active Substance: HERBALS
  6. AUSTRALIAN DREAM PAIN RELIEVING ARTHRITIS [Suspect]
     Active Substance: HISTAMINE DIHYDROCHLORIDE
     Indication: ARTHRITIS
     Dosage: AS NEEDED APPLIED TO A SURFACE, USUALLY THE SKIN
     Dates: start: 20160729, end: 20160729
  7. HYDROCODONE [Concomitant]
     Active Substance: HYDROCODONE

REACTIONS (5)
  - Application site pruritus [None]
  - Application site swelling [None]
  - Application site pain [None]
  - Application site reaction [None]
  - Application site erythema [None]

NARRATIVE: CASE EVENT DATE: 20160729
